FAERS Safety Report 16377256 (Version 1)
Quarter: 2019Q2

REPORT INFORMATION
  Report Type: Spontaneous
  Country: FR (occurrence: FR)
  Receive Date: 20190531
  Receipt Date: 20190531
  Transmission Date: 20190711
  Serious: Yes (Other)
  Sender: FDA-Public Use
  Company Number: FR-AMGEN-FRASP2019085143

PATIENT
  Age: 55 Year
  Sex: Male

DRUGS (3)
  1. CISPLATINE [Concomitant]
     Active Substance: CISPLATIN
     Indication: BRONCHIAL CARCINOMA
     Dosage: 1 DOSAGE FORM, QMO
     Route: 042
     Dates: start: 20180420, end: 201810
  2. VINORELBINE TARTRATE. [Concomitant]
     Active Substance: VINORELBINE TARTRATE
     Indication: BRONCHIAL CARCINOMA
     Dosage: 1 DOSAGE FORM, QMO
     Route: 042
     Dates: start: 20180420, end: 201810
  3. NEULASTA [Suspect]
     Active Substance: PEGFILGRASTIM
     Indication: COLONY STIMULATING FACTOR THERAPY
     Dosage: 1 DOSAGE FORM, QD
     Route: 058
     Dates: start: 20180428, end: 20180428

REACTIONS (2)
  - Myalgia [Recovered/Resolved]
  - Arthralgia [Recovered/Resolved]

NARRATIVE: CASE EVENT DATE: 20180501
